FAERS Safety Report 10456060 (Version 1)
Quarter: 2014Q3

REPORT INFORMATION
  Report Type: Spontaneous
  Country: US (occurrence: None)
  Receive Date: 20140915
  Receipt Date: 20140915
  Transmission Date: 20150326
  Serious: Yes (Disabling)
  Sender: FDA-Public Use
  Company Number: None

PATIENT
  Age: 61 Year
  Sex: Female

DRUGS (1)
  1. OXYCODONE HCL [Suspect]
     Active Substance: OXYCODONE HYDROCHLORIDE
     Indication: PAIN
     Dosage: 1 TABLET EVERY 4-6 HRS, FOUR TIMES DAILY, TAKEN BY MOUTH
     Route: 048
     Dates: start: 20140827, end: 20140830

REACTIONS (9)
  - Nausea [None]
  - Lymphadenopathy [None]
  - Headache [None]
  - Product quality issue [None]
  - Lymph node pain [None]
  - Vomiting [None]
  - Aphagia [None]
  - Reaction to colouring [None]
  - Malaise [None]

NARRATIVE: CASE EVENT DATE: 20140827
